FAERS Safety Report 9705747 (Version 2)
Quarter: 2015Q3

REPORT INFORMATION
  Report Type: Spontaneous
  Country: US (occurrence: US)
  Receive Date: 20131122
  Receipt Date: 20150803
  Transmission Date: 20151125
  Serious: No
  Sender: FDA-Public Use
  Company Number: US-GILEAD-2008-0017984

PATIENT
  Age: 72 Year
  Sex: Female
  Weight: 69.85 kg

DRUGS (8)
  1. ALDACTONE [Concomitant]
     Active Substance: SPIRONOLACTONE
     Route: 048
  2. LETAIRIS [Suspect]
     Active Substance: AMBRISENTAN
     Indication: PULMONARY ARTERIAL HYPERTENSION
     Route: 048
     Dates: start: 20071207
  3. PRINIVIL [Concomitant]
     Active Substance: LISINOPRIL
     Route: 048
  4. POTASSIUM [Concomitant]
     Active Substance: POTASSIUM
     Route: 048
  5. PROZAC [Concomitant]
     Active Substance: FLUOXETINE HYDROCHLORIDE
     Route: 048
  6. LASIX [Concomitant]
     Active Substance: FUROSEMIDE
     Route: 048
  7. ALBUTEROL. [Concomitant]
     Active Substance: ALBUTEROL
     Route: 048
  8. TYLENOL [Concomitant]
     Active Substance: ACETAMINOPHEN
     Route: 048

REACTIONS (2)
  - Nasal congestion [None]
  - Clubbing [None]
